FAERS Safety Report 10516045 (Version 5)
Quarter: 2014Q4

REPORT INFORMATION
  Report Type: Spontaneous
  Country: JP (occurrence: None)
  Receive Date: 20141009
  Receipt Date: 20141112
  Transmission Date: 20150528
  Serious: Yes (Death, Hospitalization)
  Sender: FDA-Public Use
  Company Number: SP08360

PATIENT
  Age: 84 Year
  Sex: Male

DRUGS (12)
  1. MOVIPREP [Suspect]
     Active Substance: ASCORBIC ACID\POLYETHYLENE GLYCOL 3350\POTASSIUM CHLORIDE\SODIUM ASCORBATE\SODIUM CHLORIDE\SODIUM SULFATE
     Indication: BOWEL PREPARATION
     Dosage: 1 (LIT), ORAL
     Route: 048
     Dates: start: 20140918, end: 20140918
  2. LAXOBERON [Concomitant]
     Active Substance: SODIUM PICOSULFATE
  3. GLUFAST [Concomitant]
     Active Substance: MITIGLINIDE
  4. YODEL-S (TABLET) [Concomitant]
  5. MAGMITT [Concomitant]
     Active Substance: MAGNESIUM OXIDE
  6. MOVIPREP [Suspect]
     Active Substance: ASCORBIC ACID\POLYETHYLENE GLYCOL 3350\POTASSIUM CHLORIDE\SODIUM ASCORBATE\SODIUM CHLORIDE\SODIUM SULFATE
     Indication: OCCULT BLOOD POSITIVE
     Dosage: 1 (LIT), ORAL
     Route: 048
     Dates: start: 20140918, end: 20140918
  7. ATELEC [Concomitant]
     Active Substance: CILNIDIPINE
  8. SEIBULE [Concomitant]
     Active Substance: MIGLITOL
  9. ACECOL [Concomitant]
     Active Substance: TEMOCAPRIL HYDROCHLORIDE
  10. GLACTIV [Concomitant]
     Active Substance: SITAGLIPTIN
  11. FERRUM [Concomitant]
     Active Substance: FERROUS FUMARATE
  12. PILSICAINIDE [Concomitant]
     Active Substance: PILSICAINIDE

REACTIONS (12)
  - Tumour marker increased [None]
  - Diarrhoea [None]
  - Peritonitis [None]
  - Rectal cancer [None]
  - Intestinal perforation [None]
  - Vomiting [None]
  - Gastrointestinal necrosis [None]
  - Cold sweat [None]
  - Rectal perforation [None]
  - Orthostatic hypotension [None]
  - Rectal stenosis [None]
  - Anaemia [None]

NARRATIVE: CASE EVENT DATE: 20140918
